FAERS Safety Report 8055838-9 (Version None)
Quarter: 2012Q1

REPORT INFORMATION
  Report Type: 
  Country: None (occurrence: None)
  Receive Date: 20120119
  Receipt Date: 20111025
  Transmission Date: 20120608
  Serious: No
  Sender: FDA-Public Use
  Company Number: CA-JNJFOC-20120106078

PATIENT
  Sex: Female
  Weight: 76 kg

DRUGS (4)
  1. SEROQUEL [Concomitant]
     Dosage: AT BED TIME
     Route: 065
  2. VITAMIN B-12 [Concomitant]
     Dosage: 1/M ONCE A MONTH
     Route: 065
  3. REMICADE [Suspect]
     Route: 042
     Dates: start: 20111005
  4. REMICADE [Suspect]
     Indication: CROHN'S DISEASE
     Route: 042
     Dates: start: 20110330

REACTIONS (4)
  - ABDOMINAL PAIN UPPER [None]
  - VOMITING [None]
  - ORAL NEOPLASM [None]
  - DIARRHOEA [None]
